FAERS Safety Report 22821625 (Version 4)
Quarter: 2023Q4

REPORT INFORMATION
  Report Type: Report from Study
  Country: CR (occurrence: CR)
  Receive Date: 20230814
  Receipt Date: 20231124
  Transmission Date: 20240110
  Serious: Yes (Other)
  Sender: FDA-Public Use
  Company Number: CR-002147023-NVSC2023CR175237

PATIENT
  Age: 75 Year
  Sex: Female
  Weight: 54 kg

DRUGS (2)
  1. SECUKINUMAB [Suspect]
     Active Substance: SECUKINUMAB
     Indication: Psoriatic arthropathy
     Dosage: 150 MG, QMO
     Route: 058
     Dates: start: 20230216
  2. SECUKINUMAB [Suspect]
     Active Substance: SECUKINUMAB
     Dosage: 300 MG, QMO
     Route: 058
     Dates: start: 202302

REACTIONS (49)
  - Kidney infection [Unknown]
  - Glaucoma [Unknown]
  - Open fracture [Unknown]
  - Arthritis [Unknown]
  - Condition aggravated [Unknown]
  - Weight decreased [Unknown]
  - Mental disorder [Unknown]
  - Depression [Not Recovered/Not Resolved]
  - Peripheral swelling [Not Recovered/Not Resolved]
  - Malaise [Unknown]
  - Bone disorder [Unknown]
  - Inflammation [Unknown]
  - Arthralgia [Unknown]
  - Arthropathy [Unknown]
  - Pain in extremity [Unknown]
  - Asthenia [Unknown]
  - Psychomotor hyperactivity [Unknown]
  - Nervousness [Unknown]
  - Pain [Unknown]
  - Ill-defined disorder [Unknown]
  - Gait disturbance [Unknown]
  - Mouth swelling [Unknown]
  - Lip swelling [Unknown]
  - Abdominal discomfort [Unknown]
  - Dry mouth [Unknown]
  - Balance disorder [Unknown]
  - Musculoskeletal stiffness [Unknown]
  - Insomnia [Unknown]
  - Feeling hot [Unknown]
  - Food allergy [Unknown]
  - Hypertension [Unknown]
  - Stress [Unknown]
  - Memory impairment [Unknown]
  - Fear [Unknown]
  - Fatigue [Unknown]
  - Diarrhoea [Unknown]
  - Nasopharyngitis [Recovered/Resolved]
  - Vocal cord disorder [Unknown]
  - Pharyngitis [Unknown]
  - Stomatitis [Recovered/Resolved]
  - Joint swelling [Recovered/Resolved]
  - Joint swelling [Unknown]
  - Acne [Unknown]
  - Wrong technique in product usage process [Recovered/Resolved]
  - Adverse drug reaction [Recovering/Resolving]
  - Joint swelling [Unknown]
  - Psoriasis [Unknown]
  - Stomatitis [Unknown]
  - Contusion [Unknown]

NARRATIVE: CASE EVENT DATE: 20230416
